FAERS Safety Report 20830290 (Version 2)
Quarter: 2022Q2

REPORT INFORMATION
  Report Type: Spontaneous
  Country: JP (occurrence: JP)
  Receive Date: 20220514
  Receipt Date: 20220607
  Transmission Date: 20220721
  Serious: Yes (Other)
  Sender: FDA-Public Use
  Company Number: JP-UNITED THERAPEUTICS-UNT-2022-010493

PATIENT
  Age: 8 Decade
  Sex: Female

DRUGS (4)
  1. REMODULIN [Suspect]
     Active Substance: TREPROSTINIL
     Indication: Pulmonary arterial hypertension
     Dosage: UNK, CONTINUING
     Route: 058
     Dates: start: 20220203
  2. REMODULIN [Suspect]
     Active Substance: TREPROSTINIL
     Dosage: UNK (GRADUALLY INCREASED ONCE EVERY 3 DAYS BY 1 NG/KG/MIN), CONTINUING
     Route: 058
  3. REMODULIN [Suspect]
     Active Substance: TREPROSTINIL
     Dosage: UNK (PUMP RATE 0.2 ML/DAY), CONTINUING
     Route: 058
     Dates: start: 202205
  4. REMODULIN [Suspect]
     Active Substance: TREPROSTINIL
     Dosage: 0.030 ?G/KG, CONTINUING
     Route: 058
     Dates: start: 202205

REACTIONS (4)
  - Pulmonary congestion [Unknown]
  - Dyspnoea [Unknown]
  - Fall [Recovered/Resolved with Sequelae]
  - Femoral neck fracture [Unknown]

NARRATIVE: CASE EVENT DATE: 20220501
